FAERS Safety Report 9885169 (Version 2)
Quarter: 2014Q1

REPORT INFORMATION
  Report Type: Spontaneous
  Country: TR (occurrence: TR)
  Receive Date: 20140210
  Receipt Date: 20140210
  Transmission Date: 20141002
  Serious: Yes (Hospitalization)
  Sender: FDA-Public Use
  Company Number: TR-BAYER-2013-149097

PATIENT
  Sex: Female
  Weight: 72 kg

DRUGS (3)
  1. CORASPIN [Suspect]
     Dosage: 100 MG, QD
  2. RYTMONORM [Suspect]
     Indication: ATRIAL FIBRILLATION
     Dosage: 150 MG, BID
  3. COUMADIN [Interacting]
     Indication: ATRIAL FIBRILLATION
     Dosage: UNK

REACTIONS (5)
  - Epistaxis [None]
  - Gingival bleeding [None]
  - Unevaluable event [None]
  - Rib fracture [None]
  - Fracture [None]
